FAERS Safety Report 18200333 (Version 1)
Quarter: 2020Q3

REPORT INFORMATION
  Report Type: Spontaneous
  Country: DE (occurrence: DE)
  Receive Date: 20200827
  Receipt Date: 20200827
  Transmission Date: 20201103
  Serious: Yes (Hospitalization, Other)
  Sender: FDA-Public Use
  Company Number: DE-UCBSA-2020033234

PATIENT
  Age: 18 Month
  Sex: Female
  Weight: 9.4 kg

DRUGS (1)
  1. LEVETIRACETAM. [Suspect]
     Active Substance: LEVETIRACETAM
     Indication: EPILEPSY
     Dosage: 5ML DAILYDAILY DOSE: 5 ML MILLILITRE(S) EVERY DAYS 2 SEPARATED DOSES
     Route: 048

REACTIONS (3)
  - Product dose omission in error [Unknown]
  - Product administration error [Unknown]
  - Seizure [Unknown]

NARRATIVE: CASE EVENT DATE: 20200312
